FAERS Safety Report 8971289 (Version 1)
Quarter: 2012Q4

REPORT INFORMATION
  Report Type: 
  Country: US (occurrence: US)
  Receive Date: 20121218
  Receipt Date: 20121218
  Transmission Date: 20130627
  Serious: No
  Sender: FDA-Public Use
  Company Number: US-ASTRAZENECA-2012SE91137

PATIENT
  Age: 50 Year
  Sex: Male

DRUGS (4)
  1. PRILOSEC [Suspect]
     Route: 048
  2. PRILOSEC [Suspect]
     Route: 048
  3. LISINOPRIL [Suspect]
     Route: 048
  4. LISINOPRIL [Suspect]
     Route: 048

REACTIONS (1)
  - Asthma [Unknown]
